FAERS Safety Report 12979552 (Version 5)
Quarter: 2017Q1

REPORT INFORMATION
  Report Type: Spontaneous
  Country: RU (occurrence: RU)
  Receive Date: 20161128
  Receipt Date: 20170119
  Transmission Date: 20170428
  Serious: Yes (Hospitalization)
  Sender: FDA-Public Use
  Company Number: RU-PFIZER INC-2016544506

PATIENT
  Age: 37 Year
  Sex: Female

DRUGS (4)
  1. XALKORI [Suspect]
     Active Substance: CRIZOTINIB
     Indication: LUNG CANCER METASTATIC
     Dosage: 250 MG, 2X/DAY
     Route: 048
     Dates: start: 20161103, end: 20161122
  2. XALKORI [Suspect]
     Active Substance: CRIZOTINIB
     Dosage: 1 DF, DAILY (1 CAPSULE PER DAY)
     Route: 048
     Dates: start: 20161128
  3. XALKORI [Suspect]
     Active Substance: CRIZOTINIB
     Dosage: 5 DF, DAILY (5 CAPSULES PER DAY)
     Route: 048
     Dates: start: 20161112, end: 20161112
  4. XALKORI [Suspect]
     Active Substance: CRIZOTINIB
     Dosage: 2 DF, DAILY (2 CAPSULES, DAILY)
     Dates: start: 20161205, end: 20161224

REACTIONS (10)
  - Insomnia [Recovered/Resolved]
  - Neoplasm progression [Not Recovered/Not Resolved]
  - Pneumonia [Recovered/Resolved]
  - Poverty of speech [Recovered/Resolved]
  - Memory impairment [Recovered/Resolved]
  - Incoherent [Recovered/Resolved]
  - Somnolence [Recovered/Resolved]
  - Psychomotor hyperactivity [Recovered/Resolved]
  - Asthenia [Recovered/Resolved]
  - Intentional overdose [Recovered/Resolved]

NARRATIVE: CASE EVENT DATE: 20161112
